FAERS Safety Report 9552997 (Version 2)
Quarter: 2013Q4

REPORT INFORMATION
  Report Type: Spontaneous
  Country: AU (occurrence: AU)
  Receive Date: 20130925
  Receipt Date: 20131127
  Transmission Date: 20140711
  Serious: Yes (Other)
  Sender: FDA-Public Use
  Company Number: AU-009507513-1309AUS010416

PATIENT
  Age: 39 Year
  Sex: Male

DRUGS (4)
  1. SAPHRIS [Suspect]
     Indication: SUBSTANCE-INDUCED PSYCHOTIC DISORDER
     Dosage: 5 MG, ONCE DAILY AT NIGHT
     Route: 060
  2. SAPHRIS [Suspect]
     Indication: SUBSTANCE USE
  3. VALDOXAN [Concomitant]
  4. ROHYPNOL [Concomitant]
     Dosage: UNK

REACTIONS (3)
  - Extrasystoles [Unknown]
  - Dyspnoea [Unknown]
  - Off label use [Unknown]
